FAERS Safety Report 8193533-6 (Version None)
Quarter: 2012Q1

REPORT INFORMATION
  Report Type: 
  Country: None (occurrence: None)
  Receive Date: 20120308
  Receipt Date: 20120302
  Transmission Date: 20120608
  Serious: Yes (Disabling)
  Sender: FDA-Public Use
  Company Number: TR-TEVA-322569ISR

PATIENT
  Age: 25 Year
  Sex: Female

DRUGS (4)
  1. MIRTAZAPINE [Concomitant]
     Dosage: 30 MILLIGRAM;
     Route: 065
  2. SULPIRIDE [Concomitant]
     Dosage: 50 MILLIGRAM;
     Route: 065
  3. PAROXETINE [Suspect]
     Indication: DEPRESSION
     Dosage: 20-40 MG/DAY
     Route: 065
  4. PAROXETINE [Suspect]
     Indication: AVOIDANT PERSONALITY DISORDER

REACTIONS (1)
  - PARKINSON'S DISEASE [None]
